FAERS Safety Report 14284881 (Version 2)
Quarter: 2018Q1

REPORT INFORMATION
  Report Type: Spontaneous
  Country: US (occurrence: US)
  Receive Date: 20171214
  Receipt Date: 20180119
  Transmission Date: 20180509
  Serious: Yes (Hospitalization)
  Sender: FDA-Public Use
  Company Number: US-ASTRAZENECA-2017SF25674

PATIENT
  Sex: Male

DRUGS (1)
  1. SYMBICORT [Suspect]
     Active Substance: BUDESONIDE\FORMOTEROL FUMARATE DIHYDRATE
     Dosage: 160/4.5 MCG, TWO PUFFS, TWO TIMES A DAY
     Route: 055

REACTIONS (7)
  - Wrong technique in product usage process [Unknown]
  - Product leakage [Unknown]
  - Candida infection [Unknown]
  - Memory impairment [Unknown]
  - Intentional product misuse [Unknown]
  - Visual impairment [Unknown]
  - Dyspnoea [Unknown]
